FAERS Safety Report 25830646 (Version 1)
Quarter: 2025Q3

REPORT INFORMATION
  Report Type: Spontaneous
  Country: SA (occurrence: SA)
  Receive Date: 20250922
  Receipt Date: 20250922
  Transmission Date: 20251021
  Serious: Yes (Other)
  Sender: BOEHRINGER INGELHEIM
  Company Number: SA-BoehringerIngelheim-2025-BI-096656

PATIENT
  Sex: Female

DRUGS (1)
  1. OFEV [Suspect]
     Active Substance: NINTEDANIB
     Indication: Interstitial lung disease

REACTIONS (1)
  - Haemorrhagic stroke [Unknown]
